FAERS Safety Report 10166517 (Version 1)
Quarter: 2014Q2

REPORT INFORMATION
  Report Type: Spontaneous
  Country: US (occurrence: None)
  Receive Date: 20140509
  Receipt Date: 20140509
  Transmission Date: 20141212
  Serious: Yes (Life-Threatening, Hospitalization, Other)
  Sender: FDA-Public Use
  Company Number: None

PATIENT
  Sex: Female
  Weight: 44.91 kg

DRUGS (1)
  1. AZITHROMYCIN [Suspect]
     Indication: RESPIRATORY DISORDER
     Dosage: 6 DAILY
     Dates: start: 20091216, end: 20091221

REACTIONS (2)
  - Atrial fibrillation [None]
  - Syncope [None]
